FAERS Safety Report 9210293 (Version 3)
Quarter: 2013Q2

REPORT INFORMATION
  Report Type: Report from Study
  Country: US (occurrence: US)
  Receive Date: 20130404
  Receipt Date: 20130603
  Transmission Date: 20140414
  Serious: Yes (Hospitalization)
  Sender: FDA-Public Use
  Company Number: US-ROCHE-1208687

PATIENT
  Age: 81 Year
  Sex: Male
  Weight: 49.94 kg

DRUGS (5)
  1. XELODA [Suspect]
     Indication: COLON CANCER
     Dosage: 1800 MG EVERY MORNING 2100 MG EVERY DAY EVENING
     Route: 048
     Dates: start: 20130223
  2. XELODA [Suspect]
     Route: 048
     Dates: start: 20130201
  3. XELODA [Suspect]
     Route: 048
     Dates: start: 20130223
  4. IMODIUM [Concomitant]
     Indication: DIARRHOEA
     Route: 048
  5. VITAMIN B6 [Concomitant]
     Route: 048

REACTIONS (13)
  - Anxiety [Recovered/Resolved]
  - Feeling abnormal [Recovered/Resolved]
  - Muscle spasms [Recovered/Resolved]
  - Weight decreased [Not Recovered/Not Resolved]
  - Erythema [Recovering/Resolving]
  - Burning sensation [Recovering/Resolving]
  - Heart rate increased [Not Recovered/Not Resolved]
  - Flatulence [Not Recovered/Not Resolved]
  - Diarrhoea [Not Recovered/Not Resolved]
  - Abdominal pain [Not Recovered/Not Resolved]
  - Fatigue [Not Recovered/Not Resolved]
  - Constipation [Recovered/Resolved]
  - Weight decreased [Not Recovered/Not Resolved]
